FAERS Safety Report 14720342 (Version 1)
Quarter: 2018Q2

REPORT INFORMATION
  Report Type: Spontaneous
  Country: CN (occurrence: CN)
  Receive Date: 20180405
  Receipt Date: 20180405
  Transmission Date: 20180711
  Serious: Yes (Hospitalization)
  Sender: FDA-Public Use
  Company Number: CN-ASTRAZENECA-2018SE43069

PATIENT
  Age: 24461 Day
  Sex: Male
  Weight: 90 kg

DRUGS (12)
  1. OCTREOTIDE ACETATE. [Suspect]
     Active Substance: OCTREOTIDE ACETATE
     Indication: LUNG INFECTION
     Route: 041
     Dates: start: 20180208, end: 20180213
  2. ORNIDAZOLE [Concomitant]
     Active Substance: ORNIDAZOLE
     Indication: INTESTINAL OBSTRUCTION
     Route: 041
     Dates: start: 20180208, end: 20180211
  3. CEFTIZOXIME SODIUM [Concomitant]
     Active Substance: CEFTIZOXIME SODIUM
     Indication: CHEST PAIN
     Route: 041
     Dates: start: 20180208, end: 20180210
  4. ESOMEPRAZOLE SODIUM. [Suspect]
     Active Substance: ESOMEPRAZOLE SODIUM
     Indication: CHEST PAIN
     Route: 042
     Dates: start: 20180208, end: 20180213
  5. OCTREOTIDE ACETATE. [Suspect]
     Active Substance: OCTREOTIDE ACETATE
     Indication: CHEST PAIN
     Route: 041
     Dates: start: 20180208, end: 20180213
  6. ESOMEPRAZOLE SODIUM. [Suspect]
     Active Substance: ESOMEPRAZOLE SODIUM
     Indication: LUNG INFECTION
     Route: 042
     Dates: start: 20180208, end: 20180213
  7. ESOMEPRAZOLE SODIUM. [Suspect]
     Active Substance: ESOMEPRAZOLE SODIUM
     Indication: INTESTINAL OBSTRUCTION
     Route: 042
     Dates: start: 20180208, end: 20180213
  8. CEFTIZOXIME SODIUM [Concomitant]
     Active Substance: CEFTIZOXIME SODIUM
     Indication: LUNG INFECTION
     Route: 041
     Dates: start: 20180208, end: 20180210
  9. CEFTIZOXIME SODIUM [Concomitant]
     Active Substance: CEFTIZOXIME SODIUM
     Indication: INTESTINAL OBSTRUCTION
     Route: 041
     Dates: start: 20180208, end: 20180210
  10. OCTREOTIDE ACETATE. [Suspect]
     Active Substance: OCTREOTIDE ACETATE
     Indication: INTESTINAL OBSTRUCTION
     Route: 041
     Dates: start: 20180208, end: 20180213
  11. ORNIDAZOLE [Concomitant]
     Active Substance: ORNIDAZOLE
     Indication: CHEST PAIN
     Route: 041
     Dates: start: 20180208, end: 20180211
  12. ORNIDAZOLE [Concomitant]
     Active Substance: ORNIDAZOLE
     Indication: LUNG INFECTION
     Route: 041
     Dates: start: 20180208, end: 20180211

REACTIONS (1)
  - Liver injury [Recovering/Resolving]

NARRATIVE: CASE EVENT DATE: 20180209
